FAERS Safety Report 25135338 (Version 4)
Quarter: 2025Q2

REPORT INFORMATION
  Report Type: Spontaneous
  Country: US (occurrence: US)
  Receive Date: 20250328
  Receipt Date: 20250408
  Transmission Date: 20250716
  Serious: Yes (Other)
  Sender: GILEAD
  Company Number: US-GILEAD-2025-0708786

PATIENT
  Age: 42 Year
  Sex: Male

DRUGS (1)
  1. VEMLIDY [Suspect]
     Active Substance: TENOFOVIR ALAFENAMIDE FUMARATE
     Indication: Chronic hepatitis B
     Route: 065

REACTIONS (3)
  - Mitochondrial toxicity [Recovered/Resolved]
  - Hyperphosphaturia [Recovered/Resolved]
  - Myositis [Recovered/Resolved]
